FAERS Safety Report 12604530 (Version 1)
Quarter: 2016Q3

REPORT INFORMATION
  Report Type: Spontaneous
  Country: AU (occurrence: AU)
  Receive Date: 20160728
  Receipt Date: 20160728
  Transmission Date: 20161109
  Serious: Yes (Hospitalization, Other)
  Sender: FDA-Public Use
  Company Number: AU-MYLANLABS-2016M1030805

PATIENT

DRUGS (8)
  1. PREDNISOLONE. [Suspect]
     Active Substance: PREDNISOLONE
     Dosage: 37.5 MG DAILY; LATER, CHANGED TO 50 MG DAILY
     Route: 048
  2. CICLOSPORIN [Suspect]
     Active Substance: CYCLOSPORINE
     Dosage: FOR 3 DAYS
     Route: 048
  3. CICLOSPORIN [Suspect]
     Active Substance: CYCLOSPORINE
     Indication: PYODERMA GANGRENOSUM
     Dosage: LATER, CHANGED TO 150 MG TWICE DAILY
     Route: 048
  4. PREDNISOLONE. [Suspect]
     Active Substance: PREDNISOLONE
     Dosage: 50 MG DAILY
     Route: 048
  5. PREDNISOLONE. [Suspect]
     Active Substance: PREDNISOLONE
     Indication: PYODERMA GANGRENOSUM
     Dosage: 25 MG DAILY; LATER, CHANGED TO 37.5 MG DAILY
     Route: 048
  6. IMMUNE GLOBULIN [Concomitant]
     Active Substance: HUMAN IMMUNOGLOBULIN G
     Indication: PYODERMA GANGRENOSUM
     Dosage: 2 G/KG ADMINISTERED OVER 3 DAYS
     Route: 042
  7. HYDROCORTISONE. [Concomitant]
     Active Substance: HYDROCORTISONE
     Indication: PYODERMA GANGRENOSUM
     Route: 042
  8. CEFTRIAXONE. [Concomitant]
     Active Substance: CEFTRIAXONE
     Indication: PYODERMA GANGRENOSUM
     Route: 042

REACTIONS (3)
  - Scedosporium infection [Recovered/Resolved]
  - Peptic ulcer haemorrhage [Unknown]
  - Renal failure [Unknown]
